FAERS Safety Report 6156602-8 (Version None)
Quarter: 2009Q2

REPORT INFORMATION
  Report Type: 
  Country: None (occurrence: None)
  Receive Date: 20090416
  Receipt Date: 20090410
  Transmission Date: 20091009
  Serious: No
  Sender: FDA-Public Use
  Company Number: US-B.I. PHARMACEUTICALS,INC./RIDGEFIELD-2009-BP-02657BP

PATIENT
  Sex: Female
  Weight: 74.39 kg

DRUGS (13)
  1. ATROVENT HFA [Suspect]
     Indication: BRONCHITIS
     Route: 055
     Dates: start: 20090225, end: 20090225
  2. ATROVENT HFA [Suspect]
     Indication: PULMONARY CONGESTION
  3. ATROVENT HFA [Suspect]
     Indication: DYSPNOEA
  4. PREDNISONE [Concomitant]
     Indication: SYSTEMIC LUPUS ERYTHEMATOSUS
     Route: 048
  5. ELAVIL [Concomitant]
     Indication: SYSTEMIC LUPUS ERYTHEMATOSUS
     Route: 048
  6. ZANTAC [Concomitant]
     Indication: SYSTEMIC LUPUS ERYTHEMATOSUS
     Route: 048
  7. NEURONTIN [Concomitant]
     Indication: SYSTEMIC LUPUS ERYTHEMATOSUS
     Route: 048
  8. DISCALCED [Concomitant]
     Indication: SYSTEMIC LUPUS ERYTHEMATOSUS
     Route: 048
  9. TRIAMTERENE [Concomitant]
     Indication: SYSTEMIC LUPUS ERYTHEMATOSUS
     Route: 048
  10. SYNTHROID [Concomitant]
  11. POTASSIUM CHLORIDE [Concomitant]
  12. CLONAZEPAM [Concomitant]
  13. ALBUTEROL [Concomitant]

REACTIONS (2)
  - RASH [None]
  - SWELLING FACE [None]
